FAERS Safety Report 24119782 (Version 1)
Quarter: 2024Q3

REPORT INFORMATION
  Report Type: Report from Study
  Country: US (occurrence: US)
  Receive Date: 20240722
  Receipt Date: 20240722
  Transmission Date: 20241017
  Serious: Yes (Other)
  Sender: ABBVIE
  Company Number: US-ABBVIE-5661747

PATIENT
  Sex: Female

DRUGS (1)
  1. RINVOQ [Suspect]
     Active Substance: UPADACITINIB
     Indication: Colitis ulcerative
     Dosage: FORM STRENGTH: 30 MILLIGRAM
     Route: 048
     Dates: end: 20240703

REACTIONS (7)
  - Systemic lupus erythematosus [Unknown]
  - Sensation of foreign body [Unknown]
  - Illness [Unknown]
  - Breast pain [Unknown]
  - Frequent bowel movements [Not Recovered/Not Resolved]
  - Sialoadenitis [Unknown]
  - Product administration error [Unknown]

NARRATIVE: CASE EVENT DATE: 20210101
